FAERS Safety Report 10170289 (Version 2)
Quarter: 2014Q2

REPORT INFORMATION
  Report Type: Spontaneous
  Country: US (occurrence: US)
  Receive Date: 20140513
  Receipt Date: 20140528
  Transmission Date: 20141212
  Serious: Yes (Life-Threatening, Hospitalization)
  Sender: FDA-Public Use
  Company Number: US-ACTELION-A-NJ2014-98669

PATIENT
  Age: 35 Year
  Sex: Female

DRUGS (1)
  1. VELETRI [Suspect]
     Indication: PULMONARY ARTERIAL HYPERTENSION
     Dosage: 25 NG/KG, PER MIN
     Route: 042
     Dates: start: 20130606

REACTIONS (6)
  - Dieulafoy^s vascular malformation [Recovered/Resolved]
  - Gastrointestinal haemorrhage [Recovered/Resolved]
  - Mallory-Weiss syndrome [Recovered/Resolved]
  - Cholecystectomy [Recovered/Resolved]
  - Cholecystitis [Recovering/Resolving]
  - Cholelithiasis [Recovering/Resolving]
